FAERS Safety Report 11663518 (Version 1)
Quarter: 2015Q4

REPORT INFORMATION
  Report Type: Spontaneous
  Country: US (occurrence: None)
  Receive Date: 20151026
  Receipt Date: 20151026
  Transmission Date: 20160304
  Serious: No
  Sender: FDA-Public Use
  Company Number: None

PATIENT

DRUGS (4)
  1. DEPO-MEDROL [Suspect]
     Active Substance: METHYLPREDNISOLONE ACETATE
     Indication: ARTHRALGIA
     Route: 030
     Dates: start: 20150327, end: 20150327
  2. KENALOG [Suspect]
     Active Substance: TRIAMCINOLONE ACETONIDE
     Indication: UNDIFFERENTIATED CONNECTIVE TISSUE DISEASE
     Route: 030
     Dates: start: 20150327, end: 20150327
  3. KENALOG [Suspect]
     Active Substance: TRIAMCINOLONE ACETONIDE
     Indication: ARTHRALGIA
     Route: 030
     Dates: start: 20150327, end: 20150327
  4. DEPO-MEDROL [Suspect]
     Active Substance: METHYLPREDNISOLONE ACETATE
     Indication: UNDIFFERENTIATED CONNECTIVE TISSUE DISEASE
     Route: 030
     Dates: start: 20150327, end: 20150327

REACTIONS (1)
  - Injection site reaction [None]
